FAERS Safety Report 4559748-0 (Version None)
Quarter: 2005Q1

REPORT INFORMATION
  Report Type: 
  Country: None (occurrence: None)
  Receive Date: 20050114
  Receipt Date: 20040504
  Transmission Date: 20050727
  Serious: Yes (Other)
  Sender: FDA-Public Use
  Company Number: NSADSS2002005140

PATIENT
  Age: 30 Year
  Sex: Female
  Weight: 59.4212 kg

DRUGS (2)
  1. INTRAUTERINE COPPER CONTRACEPTIVE [Suspect]
     Indication: CONTRACEPTION
     Dosage: INTRA-UTERINE
     Route: 015
     Dates: start: 20011128
  2. WELLBUTRIN [Concomitant]

REACTIONS (2)
  - DYSPAREUNIA [None]
  - IUCD COMPLICATION [None]
